FAERS Safety Report 9297867 (Version 1)
Quarter: 2013Q2

REPORT INFORMATION
  Report Type: Spontaneous
  Country: US (occurrence: None)
  Receive Date: 20130517
  Receipt Date: 20130517
  Transmission Date: 20140414
  Serious: Yes (Hospitalization)
  Sender: FDA-Public Use
  Company Number: None

PATIENT
  Age: 29 Year
  Sex: Male

DRUGS (12)
  1. ALLOPURINOL [Suspect]
     Indication: GOUT
     Dates: start: 20111115, end: 20120119
  2. INDOMETHACIN [Concomitant]
  3. PREDNISONE [Concomitant]
  4. TRISMALONE CREAM [Concomitant]
  5. COLCHICINE [Concomitant]
  6. TRAMADOL [Concomitant]
  7. DESONIDE [Concomitant]
  8. ENOXAPARIN [Concomitant]
  9. HYDROXYZINE [Concomitant]
  10. OMEPRAZOLE [Concomitant]
  11. TRIAMCINOLONE [Concomitant]
  12. VITAMIN D NOS [Concomitant]

REACTIONS (6)
  - Drug-induced liver injury [None]
  - Hypersensitivity [None]
  - Hepatitis [None]
  - Drug reaction with eosinophilia and systemic symptoms [None]
  - Upper gastrointestinal haemorrhage [None]
  - Lower gastrointestinal haemorrhage [None]
